FAERS Safety Report 13374879 (Version 1)
Quarter: 2017Q1

REPORT INFORMATION
  Report Type: Spontaneous
  Country: US (occurrence: US)
  Receive Date: 20170327
  Receipt Date: 20170327
  Transmission Date: 20170429
  Serious: Yes (Other)
  Sender: FDA-Public Use
  Company Number: US-VIFOR (INTERNATIONAL) INC.-VIT-2016-06887

PATIENT
  Sex: Female

DRUGS (12)
  1. LOVASTATIN. [Concomitant]
     Active Substance: LOVASTATIN
  2. PRAVASTATIN. [Concomitant]
     Active Substance: PRAVASTATIN
  3. RANITIDINE HYDROCHLORIDE. [Concomitant]
     Active Substance: RANITIDINE HYDROCHLORIDE
  4. VELTASSA [Suspect]
     Active Substance: PATIROMER
     Indication: HYPERKALAEMIA
     Route: 048
     Dates: start: 20160330
  5. ERGOCALCIFEROL. [Concomitant]
     Active Substance: ERGOCALCIFEROL
     Dosage: 50000
  6. ATORVASTATIN [Suspect]
     Active Substance: ATORVASTATIN
  7. ST. JOSEPH ADULT REGIMEN ASPIRIN [Concomitant]
  8. FERROUS SULFATE. [Concomitant]
     Active Substance: FERROUS SULFATE
  9. HYDRALAZINE HYDROCHLORIDE. [Concomitant]
     Active Substance: HYDRALAZINE HYDROCHLORIDE
     Indication: HYPERTENSION
  10. AZOR [Concomitant]
     Active Substance: AMLODIPINE BESYLATE\OLMESARTAN MEDOXOMIL
  11. CALCITRIOL. [Concomitant]
     Active Substance: CALCITRIOL
  12. AMLODIPINE/OLMESARTAN MEDOXOMIL [Concomitant]
     Indication: HYPERTENSION
     Dosage: 5/40

REACTIONS (7)
  - Product quality issue [Unknown]
  - Rectal haemorrhage [Unknown]
  - Colonoscopy [Unknown]
  - Faeces discoloured [Unknown]
  - Renal impairment [Unknown]
  - Blood potassium increased [Unknown]
  - Diarrhoea [Unknown]

NARRATIVE: CASE EVENT DATE: 2016
